FAERS Safety Report 5096258-9 (Version None)
Quarter: 2006Q3

REPORT INFORMATION
  Report Type: 
  Country: None (occurrence: None)
  Receive Date: 20060830
  Receipt Date: 20060818
  Transmission Date: 20061208
  Serious: Yes (Other)
  Sender: FDA-Public Use
  Company Number: CAWYE630309AUG06

PATIENT
  Age: 3 Month
  Sex: Male

DRUGS (1)
  1. EFFEXOR XR [Suspect]
     Indication: POSTPARTUM DEPRESSION
     Dosage: 150 MG OD, TRANSMAMMARY
     Route: 063
     Dates: start: 20051117, end: 20060116

REACTIONS (5)
  - DRUG EXPOSURE VIA BREAST MILK [None]
  - MULTIPLE FRACTURES [None]
  - OSTEOGENESIS IMPERFECTA [None]
  - RIB FRACTURE [None]
  - UPPER LIMB FRACTURE [None]
